FAERS Safety Report 26130443 (Version 1)
Quarter: 2025Q4

REPORT INFORMATION
  Report Type: Spontaneous
  Country: JP (occurrence: JP)
  Receive Date: 20251208
  Receipt Date: 20251208
  Transmission Date: 20260118
  Serious: Yes (Other)
  Sender: AMGEN
  Company Number: JP-AMGEN-JPNSP2025240416

PATIENT

DRUGS (4)
  1. BEVACIZUMAB [Suspect]
     Active Substance: BEVACIZUMAB
     Indication: Cervix carcinoma recurrent
     Dosage: 15 MILLIGRAM/KILOGRAM, Q3WK
     Route: 065
  2. PEMBROLIZUMAB [Suspect]
     Active Substance: PEMBROLIZUMAB
     Indication: Cervix carcinoma recurrent
     Dosage: UNK, Q3WK
     Route: 065
  3. PACLITAXEL [Concomitant]
     Active Substance: PACLITAXEL
  4. CISPLATIN [Concomitant]
     Active Substance: CISPLATIN

REACTIONS (6)
  - Adrenal insufficiency [Unknown]
  - Myositis [Unknown]
  - Colitis [Unknown]
  - Immune-mediated adverse reaction [Unknown]
  - Thyroid disorder [Unknown]
  - Dermatitis [Unknown]
